FAERS Safety Report 9211002 (Version 2)
Quarter: 2013Q2

REPORT INFORMATION
  Report Type: Spontaneous
  Country: US (occurrence: US)
  Receive Date: 20130404
  Receipt Date: 20130422
  Transmission Date: 20140414
  Serious: Yes (Death)
  Sender: FDA-Public Use
  Company Number: US-US-EMD SERONO, INC.-7202714

PATIENT
  Sex: Female

DRUGS (8)
  1. REBIF [Suspect]
     Indication: PRODUCT USED FOR UNKNOWN INDICATION
     Route: 058
     Dates: start: 20090210
  2. FOSAMAX [Concomitant]
     Indication: PRODUCT USED FOR UNKNOWN INDICATION
  3. TIZANIDINE [Concomitant]
     Indication: PRODUCT USED FOR UNKNOWN INDICATION
  4. VITAMIN B1 [Concomitant]
     Indication: PRODUCT USED FOR UNKNOWN INDICATION
  5. VITAMIN A /00056001/ [Concomitant]
     Indication: PRODUCT USED FOR UNKNOWN INDICATION
  6. AMANTADINE [Concomitant]
     Indication: PRODUCT USED FOR UNKNOWN INDICATION
  7. FISH OIL [Concomitant]
     Indication: PRODUCT USED FOR UNKNOWN INDICATION
  8. VITAMIN D3 [Concomitant]
     Indication: PRODUCT USED FOR UNKNOWN INDICATION

REACTIONS (3)
  - Viral infection [Fatal]
  - General physical health deterioration [Fatal]
  - Convulsion [Fatal]
